FAERS Safety Report 9098689 (Version 1)
Quarter: 2013Q1

REPORT INFORMATION
  Report Type: Spontaneous
  Country: RU (occurrence: RU)
  Receive Date: 20130213
  Receipt Date: 20130213
  Transmission Date: 20140127
  Serious: Yes (Hospitalization, Other)
  Sender: FDA-Public Use
  Company Number: RU-PFIZER INC-2013052499

PATIENT
  Age: 52 Year
  Sex: Male

DRUGS (6)
  1. LIPRIMAR [Suspect]
     Indication: MYOCARDIAL ISCHAEMIA
     Dosage: 20 MG, DAILY
     Route: 048
     Dates: start: 201206
  2. LIPRIMAR [Suspect]
     Indication: STENT PLACEMENT
     Dosage: 40 MG, DAILY
     Route: 048
     Dates: start: 201207, end: 201301
  3. LIPRIMAR [Suspect]
     Indication: HYPERCHOLESTEROLAEMIA
  4. LIPRIMAR [Suspect]
     Indication: RENAL FAILURE CHRONIC
  5. CONCOR [Concomitant]
     Indication: MYOCARDIAL ISCHAEMIA
     Dosage: 2.5 MG, DAILY
     Route: 048
  6. CARDIOMAGNYL [Concomitant]
     Indication: MYOCARDIAL ISCHAEMIA
     Dosage: 75 MG, DAILY
     Route: 048

REACTIONS (7)
  - Blood creatinine increased [Recovered/Resolved]
  - Pericardial effusion [Recovered/Resolved]
  - Asthenia [Recovered/Resolved]
  - Myalgia [Recovered/Resolved]
  - Hyperhidrosis [Recovered/Resolved]
  - Alanine aminotransferase increased [Recovered/Resolved]
  - Aspartate aminotransferase increased [Recovered/Resolved]
